FAERS Safety Report 4303097-2 (Version None)
Quarter: 2004Q1

REPORT INFORMATION
  Report Type: 
  Country: None (occurrence: None)
  Receive Date: 20040126
  Receipt Date: 20030929
  Transmission Date: 20041129
  Serious: No
  Sender: FDA-Public Use
  Company Number: USA030948555

PATIENT
  Age: 19 Year
  Sex: Male
  Weight: 73 kg

DRUGS (4)
  1. STRATTERA [Suspect]
     Indication: ATTENTION DEFICIT/HYPERACTIVITY DISORDER
     Dosage: 40 MG/DAY
     Dates: start: 20030925, end: 20030929
  2. ADVAIR DISKUS 100/50 [Concomitant]
  3. MONTELUKAST [Concomitant]
  4. PAXIL [Concomitant]

REACTIONS (3)
  - BELLIGERENCE [None]
  - FATIGUE [None]
  - SOMNOLENCE [None]
